FAERS Safety Report 9553630 (Version 1)
Quarter: 2013Q3

REPORT INFORMATION
  Report Type: Spontaneous
  Country: US (occurrence: None)
  Receive Date: 20130924
  Receipt Date: 20130924
  Transmission Date: 20140515
  Serious: Yes (Life-Threatening, Hospitalization)
  Sender: FDA-Public Use
  Company Number: None

PATIENT
  Age: 23 Year
  Sex: Male
  Weight: 61.24 kg

DRUGS (1)
  1. LOPRESSOR [Suspect]
     Indication: WRONG DRUG ADMINISTERED
     Dates: start: 20130916, end: 20130916

REACTIONS (3)
  - Hypotension [None]
  - Apparent death [None]
  - Dyspnoea [None]
